FAERS Safety Report 13358504 (Version 2)
Quarter: 2019Q4

REPORT INFORMATION
  Report Type: Spontaneous
  Country: GR (occurrence: GR)
  Receive Date: 20170322
  Receipt Date: 20191021
  Transmission Date: 20200122
  Serious: Yes (Other)
  Sender: FDA-Public Use
  Company Number: GR-TEVA-748479ISR

PATIENT
  Age: 34 Year
  Sex: Female

DRUGS (3)
  1. NEUROBION [Suspect]
     Active Substance: CYANOCOBALAMIN\PYRIDOXINE\THIAMINE
     Indication: PSORIASIS
     Route: 065
     Dates: start: 201305, end: 20131023
  2. ATARAX [Suspect]
     Active Substance: HYDROXYZINE HYDROCHLORIDE
     Indication: PSORIASIS
     Route: 065
     Dates: start: 201305, end: 20131023
  3. NEOTIGASON [Suspect]
     Active Substance: ACITRETIN
     Indication: PSORIASIS
     Route: 065
     Dates: start: 201304, end: 20131023

REACTIONS (2)
  - Maternal exposure during pregnancy [Unknown]
  - Abortion induced [Unknown]
